FAERS Safety Report 17231586 (Version 3)
Quarter: 2021Q1

REPORT INFORMATION
  Report Type: Spontaneous
  Country: US (occurrence: US)
  Receive Date: 20200103
  Receipt Date: 20210301
  Transmission Date: 20210419
  Serious: No
  Sender: FDA-Public Use
  Company Number: US-PFIZER INC-2019562247

PATIENT
  Age: 78 Year
  Sex: Female
  Weight: 80.74 kg

DRUGS (2)
  1. IBRANCE [Suspect]
     Active Substance: PALBOCICLIB
     Indication: BREAST CANCER FEMALE
  2. IBRANCE [Suspect]
     Active Substance: PALBOCICLIB
     Indication: BREAST CANCER METASTATIC
     Dosage: 125 MG, CYCLIC  ( 21 DAYS AND A WEEK OFF)
     Route: 048
     Dates: start: 2019

REACTIONS (2)
  - Secretion discharge [Unknown]
  - Dysphonia [Unknown]
